FAERS Safety Report 4344841-8 (Version None)
Quarter: 2004Q2

REPORT INFORMATION
  Report Type: 
  Country: None (occurrence: None)
  Receive Date: 20040420
  Receipt Date: 20040405
  Transmission Date: 20050107
  Serious: Yes (Hospitalization)
  Sender: FDA-Public Use
  Company Number: K200400043

PATIENT
  Age: 34 Year
  Sex: Female
  Weight: 75.7 kg

DRUGS (3)
  1. CYTOMEL TABLETS (LIOTHYRONINE) TABLET, 5MCG [Suspect]
     Indication: HYPOTHYROIDISM
     Dosage: 5MCG, TID; ORAL
     Route: 048
     Dates: start: 20010101
  2. SYNTHROID (LEVOTHYROXINE SODIUM) 112 MCG [Suspect]
     Indication: HYPOTHYROIDISM
     Dosage: 112 MCG, QD; ORAL (SEE IMAGE)
     Route: 048
     Dates: start: 19990101, end: 20031001
  3. SYNTHROID (LEVOTHYROXINE SODIUM) 112 MCG [Suspect]
     Indication: HYPOTHYROIDISM
     Dosage: 112 MCG, QD; ORAL (SEE IMAGE)
     Route: 048
     Dates: start: 20031001

REACTIONS (11)
  - ACNE [None]
  - ALOPECIA [None]
  - BREAST DISCHARGE [None]
  - BREAST ENGORGEMENT [None]
  - DRUG INEFFECTIVE [None]
  - ECZEMA [None]
  - FATIGUE [None]
  - HYPOTHYROIDISM [None]
  - INTRA-ABDOMINAL HAEMORRHAGE [None]
  - LOSS OF CONSCIOUSNESS [None]
  - RUPTURED ECTOPIC PREGNANCY [None]
